FAERS Safety Report 19301973 (Version 1)
Quarter: 2021Q2

REPORT INFORMATION
  Report Type: Spontaneous
  Country: US (occurrence: US)
  Receive Date: 20210524
  Receipt Date: 20210524
  Transmission Date: 20210717
  Serious: Yes (Disabling, Other)
  Sender: FDA-Public Use
  Company Number: US-PURDUE-USA-2020-0179142

PATIENT
  Sex: Male

DRUGS (2)
  1. ROXICODONE [Suspect]
     Active Substance: OXYCODONE HYDROCHLORIDE
     Indication: PAIN
     Dosage: UNK
     Route: 065
  2. OXYCONTIN [Suspect]
     Active Substance: OXYCODONE HYDROCHLORIDE
     Indication: PAIN
     Dosage: UNKNOWN
     Route: 048

REACTIONS (9)
  - Toxicity to various agents [Unknown]
  - Diarrhoea [Unknown]
  - Impaired driving ability [Unknown]
  - Restless legs syndrome [Unknown]
  - Drug withdrawal syndrome [Unknown]
  - Night sweats [Unknown]
  - Nausea [Unknown]
  - Drug dependence [Unknown]
  - Vomiting [Unknown]

NARRATIVE: CASE EVENT DATE: 2012
